FAERS Safety Report 10286666 (Version 1)
Quarter: 2014Q3

REPORT INFORMATION
  Report Type: Spontaneous
  Country: US (occurrence: US)
  Receive Date: 20140709
  Receipt Date: 20140709
  Transmission Date: 20150326
  Serious: No
  Sender: FDA-Public Use
  Company Number: US-ASTRAZENECA-2014SE26819

PATIENT
  Sex: Male

DRUGS (2)
  1. SEROQUEL [Suspect]
     Active Substance: QUETIAPINE FUMARATE
     Dosage: INTRAVENOUSLY OR SUBCUTANEOUSLY
     Route: 065
  2. SEROQUEL [Suspect]
     Active Substance: QUETIAPINE FUMARATE
     Dosage: INTRAVENOUSLY OR SUBCUTANEOUSLY
     Route: 065

REACTIONS (2)
  - Skin infection [Unknown]
  - Incorrect route of drug administration [Unknown]
